APPROVED DRUG PRODUCT: AMINOPHYLLINE
Active Ingredient: AMINOPHYLLINE
Strength: 25MG/ML
Dosage Form/Route: INJECTABLE;INJECTION
Application: A087387 | Product #001
Applicant: PHARMA SERVE INC SUB TORIGIAN LABORATORIES
Approved: Jun 3, 1983 | RLD: No | RS: No | Type: DISCN